FAERS Safety Report 11898809 (Version 1)
Quarter: 2016Q1

REPORT INFORMATION
  Report Type: Spontaneous
  Country: US (occurrence: None)
  Receive Date: 20160107
  Receipt Date: 20160107
  Transmission Date: 20160526
  Serious: Yes (Hospitalization)
  Sender: FDA-Public Use
  Company Number: None

PATIENT
  Sex: Female

DRUGS (1)
  1. CAPECITABINE 500MG TEVA [Suspect]
     Active Substance: CAPECITABINE
     Indication: IDIOPATHIC PULMONARY FIBROSIS
     Dosage: 4 TABS
     Route: 048
     Dates: start: 20151006

REACTIONS (1)
  - Hospitalisation [None]
